FAERS Safety Report 10459746 (Version 1)
Quarter: 2014Q3

REPORT INFORMATION
  Report Type: Spontaneous
  Country: US (occurrence: US)
  Receive Date: 20140917
  Receipt Date: 20140917
  Transmission Date: 20150326
  Serious: Yes (Other)
  Sender: FDA-Public Use
  Company Number: US-GLAXOSMITHKLINE-A1088848A

PATIENT
  Sex: Male

DRUGS (3)
  1. LAMICTAL [Suspect]
     Active Substance: LAMOTRIGINE
     Indication: EPILEPSY
     Dosage: 900MG PER DAY
     Route: 048
  2. LAMOTRIGINE. [Suspect]
     Active Substance: LAMOTRIGINE
     Indication: EPILEPSY
     Dosage: 900MG PER DAY
     Route: 048
     Dates: start: 200907
  3. LYRICA [Concomitant]
     Active Substance: PREGABALIN

REACTIONS (7)
  - Brain operation [Unknown]
  - Feeling abnormal [Unknown]
  - Convulsion [Recovering/Resolving]
  - Medication error [Unknown]
  - Drug ineffective [Unknown]
  - Speech disorder [Recovering/Resolving]
  - Amnesia [Unknown]
